FAERS Safety Report 12215217 (Version 3)
Quarter: 2017Q1

REPORT INFORMATION
  Report Type: Report from Study
  Country: None (occurrence: CA)
  Receive Date: 20160328
  Receipt Date: 20170305
  Transmission Date: 20170428
  Serious: Yes (Hospitalization, Other)
  Sender: FDA-Public Use
  Company Number: CA-ABBVIE-16K-028-1580770-00

PATIENT
  Age: 79 Year
  Sex: Male

DRUGS (2)
  1. HUMIRA [Suspect]
     Active Substance: ADALIMUMAB
     Indication: CROHN^S DISEASE
     Route: 058
     Dates: start: 20090715, end: 2016
  2. HUMIRA [Suspect]
     Active Substance: ADALIMUMAB
     Route: 058
     Dates: start: 20160516

REACTIONS (7)
  - Burning sensation [Not Recovered/Not Resolved]
  - Small intestinal obstruction [Recovered/Resolved]
  - Intestinal anastomosis complication [Unknown]
  - Injection site pain [Not Recovered/Not Resolved]
  - Crohn^s disease [Recovered/Resolved]
  - Neuropathy peripheral [Not Recovered/Not Resolved]
  - Intervertebral disc protrusion [Not Recovered/Not Resolved]

NARRATIVE: CASE EVENT DATE: 201511
